FAERS Safety Report 21761417 (Version 3)
Quarter: 2023Q2

REPORT INFORMATION
  Report Type: Spontaneous
  Country: US (occurrence: US)
  Receive Date: 20221221
  Receipt Date: 20230412
  Transmission Date: 20230722
  Serious: No
  Sender: FDA-Public Use
  Company Number: US-PFIZER INC-202201384779

PATIENT
  Age: 68 Year
  Sex: Female

DRUGS (16)
  1. IBRANCE [Suspect]
     Active Substance: PALBOCICLIB
     Dosage: 125 MG, CYCLIC (DAILY 3 WEEKS ON, 1 WEEK OFF)
     Route: 048
     Dates: start: 20221019, end: 202301
  2. IBRANCE [Suspect]
     Active Substance: PALBOCICLIB
     Dosage: 125 MG, CYCLIC (DAILY 3 WEEKS ON, 1 WEEK OFF)
     Route: 048
     Dates: start: 202301, end: 202303
  3. ASPIRIN [Concomitant]
     Active Substance: ASPIRIN
     Dosage: UNK
  4. OMEPRAZOLE [Concomitant]
     Active Substance: OMEPRAZOLE
     Dosage: UNK
  5. TRAZODONE [Concomitant]
     Active Substance: TRAZODONE HYDROCHLORIDE
     Dosage: UNK
  6. FLUTICASONE PROPIONATE [Concomitant]
     Active Substance: FLUTICASONE PROPIONATE
     Dosage: UNK
  7. ATORVASTATIN [Concomitant]
     Active Substance: ATORVASTATIN
  8. BENZONATATE [Concomitant]
     Active Substance: BENZONATATE
  9. CLOPIDOGREL [Concomitant]
     Active Substance: CLOPIDOGREL BISULFATE
  10. DOXYCYCLINE [Concomitant]
     Active Substance: DOXYCYCLINE
  11. EXEMESTANE [Concomitant]
     Active Substance: EXEMESTANE
  12. LOSARTAN [Concomitant]
     Active Substance: LOSARTAN
  13. METOPROLOL [Concomitant]
     Active Substance: METOPROLOL
  14. OSELTAMIVIR [Concomitant]
     Active Substance: OSELTAMIVIR
  15. PREDNISONE [Concomitant]
     Active Substance: PREDNISONE
  16. TAMSULOSIN [Concomitant]
     Active Substance: TAMSULOSIN

REACTIONS (4)
  - Alopecia [Unknown]
  - Influenza [Unknown]
  - Sinus disorder [Unknown]
  - Neoplasm progression [Not Recovered/Not Resolved]

NARRATIVE: CASE EVENT DATE: 20220101
